FAERS Safety Report 24242295 (Version 2)
Quarter: 2024Q3

REPORT INFORMATION
  Report Type: Spontaneous
  Country: FR (occurrence: FR)
  Receive Date: 20240823
  Receipt Date: 20240905
  Transmission Date: 20241017
  Serious: Yes (Hospitalization, Other)
  Sender: PFIZER
  Company Number: FR-GILEAD-2024-0682826

PATIENT
  Age: 40 Year
  Sex: Male
  Weight: 93 kg

DRUGS (31)
  1. PEMETREXED [Suspect]
     Active Substance: PEMETREXED
     Indication: Non-small cell lung cancer metastatic
     Dosage: 690 MG
     Dates: start: 20240614, end: 20240614
  2. PEMETREXED [Suspect]
     Active Substance: PEMETREXED
     Dosage: 700 MG
     Dates: start: 20240705, end: 20240705
  3. PEMETREXED [Suspect]
     Active Substance: PEMETREXED
     Dosage: 880 MG
     Dates: start: 20240510, end: 20240510
  4. PEMETREXED [Suspect]
     Active Substance: PEMETREXED
     Dosage: 790 MG
     Dates: start: 20240419, end: 20240419
  5. PEMETREXED [Suspect]
     Active Substance: PEMETREXED
     Dosage: 650 MG
     Dates: start: 20240823, end: 20240823
  6. CARBOPLATIN [Suspect]
     Active Substance: CARBOPLATIN
     Indication: Non-small cell lung cancer metastatic
     Dosage: 515 MG
     Dates: start: 20240419, end: 20240419
  7. CARBOPLATIN [Suspect]
     Active Substance: CARBOPLATIN
     Dosage: 470 MG
     Dates: start: 20240614, end: 20240614
  8. CARBOPLATIN [Suspect]
     Active Substance: CARBOPLATIN
     Dosage: 575 MG
     Dates: start: 20240513, end: 20240513
  9. CARBOPLATIN [Suspect]
     Active Substance: CARBOPLATIN
     Dosage: 450 MG
     Dates: start: 20240705, end: 20240705
  10. PEMBROLIZUMAB [Suspect]
     Active Substance: PEMBROLIZUMAB
     Indication: Non-small cell lung cancer metastatic
     Dosage: 200 MG
     Dates: start: 20240614, end: 20240614
  11. PEMBROLIZUMAB [Suspect]
     Active Substance: PEMBROLIZUMAB
     Dosage: 200 MG
     Dates: start: 20240419, end: 20240419
  12. PEMBROLIZUMAB [Suspect]
     Active Substance: PEMBROLIZUMAB
     Dosage: 200 MG
     Dates: start: 20240705, end: 20240705
  13. PEMBROLIZUMAB [Suspect]
     Active Substance: PEMBROLIZUMAB
     Dosage: 200 MG
     Dates: start: 20240802, end: 20240802
  14. PEMBROLIZUMAB [Suspect]
     Active Substance: PEMBROLIZUMAB
     Dosage: 200 MG
     Dates: start: 20240510, end: 20240510
  15. CHOLECALCIFEROL [Concomitant]
     Active Substance: CHOLECALCIFEROL
     Indication: Prophylaxis
     Dosage: UNK
  16. PREDNISOLONE [Concomitant]
     Active Substance: PREDNISOLONE
     Indication: Premedication
     Dosage: UNK
     Dates: start: 20240419
  17. KARDEGIC [Concomitant]
     Active Substance: ASPIRIN DL-LYSINE
     Indication: Prophylaxis
     Dosage: UNK
     Dates: start: 2019
  18. FOLIC ACID [Concomitant]
     Active Substance: FOLIC ACID
     Indication: Prophylaxis
     Dosage: UNK
     Dates: start: 20240404
  19. ALDACTONE [Concomitant]
     Active Substance: SPIRONOLACTONE
     Indication: Hypertension
     Dosage: UNK
     Dates: start: 2021
  20. TOUJEO [Concomitant]
     Active Substance: INSULIN GLARGINE
     Indication: Diabetes mellitus
     Dosage: UNK
     Dates: start: 2022
  21. COBAMAMIDE [Concomitant]
     Active Substance: COBAMAMIDE
     Indication: Prophylaxis
     Dosage: UNK
     Dates: start: 20240404
  22. TAHOR [Concomitant]
     Active Substance: ATORVASTATIN CALCIUM
     Indication: Hypercholesterolaemia
     Dosage: UNK
     Dates: start: 2019
  23. LEVOTHYROXINE [Concomitant]
     Active Substance: LEVOTHYROXINE\LEVOTHYROXINE SODIUM
     Indication: Hypothyroidism
     Dosage: UNK
     Dates: start: 2019
  24. XIGDUO XR [Concomitant]
     Active Substance: DAPAGLIFLOZIN PROPANEDIOL\METFORMIN HYDROCHLORIDE
     Indication: Diabetes mellitus
     Dosage: UNK
     Dates: start: 2022
  25. ATENOLOL [Concomitant]
     Active Substance: ATENOLOL
     Indication: Hypertension
     Dosage: UNK
     Dates: start: 2019
  26. POLYETHYLENE GLYCOLS [Concomitant]
     Active Substance: POLYETHYLENE GLYCOLS
     Indication: Constipation
     Dosage: UNK
     Dates: start: 2019
  27. ESIDREX [Concomitant]
     Active Substance: HYDROCHLOROTHIAZIDE
     Indication: Dysuria
     Dosage: UNK
     Dates: start: 2019
  28. ALLOPURINOL [Concomitant]
     Active Substance: ALLOPURINOL
     Indication: Gout
     Dosage: UNK
     Dates: start: 2014
  29. EMEND [Concomitant]
     Active Substance: APREPITANT
     Indication: Premedication
     Dosage: UNK
     Dates: start: 20240419
  30. KYTRIL [Concomitant]
     Active Substance: GRANISETRON HYDROCHLORIDE
     Indication: Premedication
     Dosage: UNK
     Dates: start: 20240419
  31. ESOMEPRAZOLE MAGNESIUM [Concomitant]
     Active Substance: ESOMEPRAZOLE MAGNESIUM
     Indication: Prophylaxis
     Dosage: UNK

REACTIONS (6)
  - Cardiac failure [Recovered/Resolved]
  - N-terminal prohormone brain natriuretic peptide increased [Unknown]
  - Anaemia [Recovered/Resolved]
  - Dyspnoea [Unknown]
  - Pleural effusion [Unknown]
  - Off label use [Unknown]

NARRATIVE: CASE EVENT DATE: 20240419
